FAERS Safety Report 15062255 (Version 1)
Quarter: 2018Q2

REPORT INFORMATION
  Report Type: Report from Study
  Country: US (occurrence: US)
  Receive Date: 20180625
  Receipt Date: 20180625
  Transmission Date: 20180711
  Serious: Yes (Hospitalization, Other)
  Sender: FDA-Public Use
  Company Number: US-ALEXION PHARMACEUTICALS INC.-A201807721

PATIENT
  Sex: Female

DRUGS (2)
  1. SOLIRIS [Suspect]
     Active Substance: ECULIZUMAB
     Dosage: UNK, Q2W
     Route: 042
     Dates: start: 20180508, end: 20180605
  2. SOLIRIS [Suspect]
     Active Substance: ECULIZUMAB
     Indication: ATYPICAL HAEMOLYTIC URAEMIC SYNDROME
     Dosage: UNK
     Route: 065

REACTIONS (12)
  - Electrocardiogram T wave inversion [Unknown]
  - Interstitial lung disease [Unknown]
  - Respiratory tract oedema [Unknown]
  - Staphylococcal infection [Unknown]
  - Upper respiratory tract infection [Unknown]
  - Atelectasis [Unknown]
  - Bronchitis [Unknown]
  - Hyperkalaemia [Unknown]
  - Troponin increased [Unknown]
  - Respiratory distress [Unknown]
  - Catheter site haemorrhage [Unknown]
  - Device related infection [Unknown]

NARRATIVE: CASE EVENT DATE: 20180604
